FAERS Safety Report 5225874-6 (Version None)
Quarter: 2007Q1

REPORT INFORMATION
  Report Type: 
  Country: None (occurrence: None)
  Receive Date: 20070130
  Receipt Date: 20070130
  Transmission Date: 20070707
  Serious: Yes (Hospitalization)
  Sender: FDA-Public Use
  Company Number: None

PATIENT
  Age: 62 Year
  Sex: Male
  Weight: 140.6151 kg

DRUGS (7)
  1. WARFARIN SODIUM [Suspect]
     Dosage: 10 MG   DAILY   PO
     Route: 048
  2. IBUPROFEN [Suspect]
     Dosage: 400 MG    QID   PO
     Route: 048
  3. FELODOPINE [Concomitant]
  4. ROSUVASTATIN [Concomitant]
  5. LISINOPRIL [Concomitant]
  6. METOPROLOL SUCCINATE [Concomitant]
  7. FUROSEMIDE [Concomitant]

REACTIONS (5)
  - DIZZINESS [None]
  - GASTROINTESTINAL HAEMORRHAGE [None]
  - HYPERHIDROSIS [None]
  - HYPOTENSION [None]
  - PYREXIA [None]
